FAERS Safety Report 13729196 (Version 2)
Quarter: 2017Q3

REPORT INFORMATION
  Report Type: Spontaneous
  Country: US (occurrence: US)
  Receive Date: 20170707
  Receipt Date: 20170731
  Transmission Date: 20171127
  Serious: No
  Sender: FDA-Public Use
  Company Number: US-JNJFOC-20170520253

PATIENT
  Age: 26 Year
  Sex: Male
  Weight: 89.81 kg

DRUGS (6)
  1. INVEGA [Suspect]
     Active Substance: PALIPERIDONE
     Indication: SCHIZOPHRENIA
     Dosage: IN THE AFTERNOON
     Route: 048
     Dates: start: 201605, end: 201605
  2. INVEGA SUSTENNA [Suspect]
     Active Substance: PALIPERIDONE PALMITATE
     Indication: SCHIZOPHRENIA
     Route: 030
     Dates: start: 20170706
  3. INVEGA SUSTENNA [Suspect]
     Active Substance: PALIPERIDONE PALMITATE
     Indication: SCHIZOPHRENIA
     Route: 030
     Dates: start: 201705, end: 2017
  4. INVEGA SUSTENNA [Suspect]
     Active Substance: PALIPERIDONE PALMITATE
     Indication: SCHIZOPHRENIA
     Route: 030
     Dates: start: 201606, end: 201705
  5. INVEGA SUSTENNA [Suspect]
     Active Substance: PALIPERIDONE PALMITATE
     Indication: SCHIZOPHRENIA
     Route: 030
     Dates: start: 201605, end: 201605
  6. INVEGA [Suspect]
     Active Substance: PALIPERIDONE
     Indication: SCHIZOPHRENIA
     Dosage: IN THE MORNING
     Route: 048
     Dates: start: 201605, end: 201605

REACTIONS (10)
  - Drug ineffective [Unknown]
  - Feeling abnormal [Unknown]
  - Sedation [Not Recovered/Not Resolved]
  - Cognitive disorder [Not Recovered/Not Resolved]
  - Discomfort [Unknown]
  - Thought blocking [Unknown]
  - Abnormal behaviour [Not Recovered/Not Resolved]
  - Social problem [Not Recovered/Not Resolved]
  - Personal relationship issue [Unknown]
  - Communication disorder [Unknown]

NARRATIVE: CASE EVENT DATE: 201605
